FAERS Safety Report 18989718 (Version 4)
Quarter: 2021Q2

REPORT INFORMATION
  Report Type: Report from Study
  Country: FR (occurrence: FR)
  Receive Date: 20210309
  Receipt Date: 20210422
  Transmission Date: 20210717
  Serious: Yes (Hospitalization)
  Sender: FDA-Public Use
  Company Number: FR-EISAI MEDICAL RESEARCH-EC-2021-088934

PATIENT
  Age: 6 Year
  Sex: Male
  Weight: 20 kg

DRUGS (12)
  1. LAMICTAL [Concomitant]
     Active Substance: LAMOTRIGINE
     Dates: start: 20200724
  2. PERAMPANEL [Suspect]
     Active Substance: PERAMPANEL
     Route: 048
     Dates: start: 20201117, end: 20201207
  3. PERAMPANEL [Suspect]
     Active Substance: PERAMPANEL
     Route: 048
     Dates: start: 20210301, end: 20210322
  4. PERAMPANEL [Suspect]
     Active Substance: PERAMPANEL
     Route: 048
     Dates: start: 20210323
  5. PERAMPANEL [Suspect]
     Active Substance: PERAMPANEL
     Indication: EPILEPSY WITH MYOCLONIC-ATONIC SEIZURES
     Route: 048
     Dates: start: 20201105, end: 20201116
  6. PERAMPANEL [Suspect]
     Active Substance: PERAMPANEL
     Route: 048
     Dates: start: 20201208, end: 20201213
  7. PERAMPANEL [Suspect]
     Active Substance: PERAMPANEL
     Route: 048
     Dates: start: 20201214, end: 20201228
  8. PERAMPANEL [Suspect]
     Active Substance: PERAMPANEL
     Route: 048
     Dates: start: 20210210, end: 20210228
  9. MOVICOL [Concomitant]
     Active Substance: POLYETHYLENE GLYCOL 3350\POTASSIUM CHLORIDE\SODIUM BICARBONATE\SODIUM CHLORIDE
     Dosage: PRN
     Dates: start: 20180920
  10. MICROPAKINE [Concomitant]
     Active Substance: VALPROATE SODIUM
     Dates: start: 20190118
  11. PERAMPANEL [Suspect]
     Active Substance: PERAMPANEL
     Route: 048
     Dates: start: 20201229, end: 20210205
  12. PERAMPANEL [Suspect]
     Active Substance: PERAMPANEL
     Route: 048
     Dates: start: 20210206, end: 20210209

REACTIONS (1)
  - Neurological decompensation [Recovered/Resolved]

NARRATIVE: CASE EVENT DATE: 20210209
